FAERS Safety Report 7388065-9 (Version None)
Quarter: 2011Q2

REPORT INFORMATION
  Report Type: 
  Country: None (occurrence: None)
  Receive Date: 20110401
  Receipt Date: 20110329
  Transmission Date: 20111010
  Serious: No
  Sender: FDA-Public Use
  Company Number: US-PFIZER INC-2011070114

PATIENT
  Sex: Female
  Weight: 82.993 kg

DRUGS (2)
  1. ZARONTIN [Suspect]
     Indication: EPILEPSY
     Dosage: 500 MG, 2X/DAY
     Route: 048
  2. DEPAKOTE [Concomitant]
     Indication: CONVULSION
     Dosage: 250 MG, 2X/DAY

REACTIONS (3)
  - MOOD ALTERED [None]
  - ABNORMAL BEHAVIOUR [None]
  - THINKING ABNORMAL [None]
